FAERS Safety Report 14822456 (Version 1)
Quarter: 2018Q2

REPORT INFORMATION
  Report Type: Spontaneous
  Country: VN (occurrence: VN)
  Receive Date: 20180427
  Receipt Date: 20180427
  Transmission Date: 20180711
  Serious: Yes (Death)
  Sender: FDA-Public Use
  Company Number: VN-PFIZER INC-2018168960

PATIENT
  Age: 30 Year
  Sex: Female

DRUGS (5)
  1. LACTATED RINGERS SOLUTION [Suspect]
     Active Substance: CALCIUM CHLORIDE\POTASSIUM CHLORIDE\SODIUM CHLORIDE\SODIUM LACTATE
     Indication: FOOD ALLERGY
     Dosage: 500 ML, UNK
  2. SOLU-MEDROL [Suspect]
     Active Substance: METHYLPREDNISOLONE SODIUM SUCCINATE
     Indication: FOOD ALLERGY
     Dosage: 125 ML, UNK
  3. ZANTAC [Concomitant]
     Active Substance: RANITIDINE HYDROCHLORIDE
     Indication: HAEMORRHAGE PROPHYLAXIS
     Dosage: 50 MG, SINGLE
  4. RUPAFIN [Suspect]
     Active Substance: RUPATADINE FUMARATE
     Indication: FOOD ALLERGY
     Dosage: 10 MG, UNK
  5. CHLORPHENIRAMINE /00072501/ [Suspect]
     Active Substance: CHLORPHENIRAMINE
     Indication: HYPERSENSITIVITY
     Dosage: 4 MG, SINGLE

REACTIONS (3)
  - Anaphylactic shock [Fatal]
  - Cardiac arrest [Fatal]
  - Apnoea [Fatal]

NARRATIVE: CASE EVENT DATE: 201804
